FAERS Safety Report 19770956 (Version 1)
Quarter: 2021Q3

REPORT INFORMATION
  Report Type: Spontaneous
  Country: US (occurrence: US)
  Receive Date: 20210901
  Receipt Date: 20210901
  Transmission Date: 20211014
  Serious: No
  Sender: FDA-Public Use
  Company Number: US-ALNYLAM PHARMACEUTICALS, INC.-ALN-2021-002108

PATIENT

DRUGS (2)
  1. PANHEMATIN [Suspect]
     Active Substance: HEMIN
     Indication: PORPHYRIA ACUTE
     Dosage: UNK
     Route: 065
  2. GIVLAARI [Suspect]
     Active Substance: GIVOSIRAN SODIUM
     Indication: PORPHYRIA ACUTE
     Dosage: UNK
     Route: 058
     Dates: start: 202001

REACTIONS (7)
  - Psychological trauma [Unknown]
  - Malaise [Unknown]
  - Cast removal [Unknown]
  - Drug ineffective [Unknown]
  - Feeling abnormal [Unknown]
  - Drug interaction [Unknown]
  - Iron overload [Not Recovered/Not Resolved]

NARRATIVE: CASE EVENT DATE: 20210825
